FAERS Safety Report 7399013-X (Version None)
Quarter: 2011Q1

REPORT INFORMATION
  Report Type: 
  Country: None (occurrence: None)
  Receive Date: 20110328
  Receipt Date: 20110310
  Transmission Date: 20110831
  Serious: Yes (Hospitalization)
  Sender: FDA-Public Use
  Company Number: 020089

PATIENT
  Sex: Male
  Weight: 118 kg

DRUGS (3)
  1. PREDNISONE [Concomitant]
  2. ACETAMINOPHEN [Concomitant]
  3. CIMZIA [Suspect]
     Indication: CROHN'S DISEASE
     Dosage: (SUBCUTANEOUS)
     Route: 058
     Dates: start: 20100428

REACTIONS (35)
  - ABDOMINAL PAIN [None]
  - PYREXIA [None]
  - VOMITING [None]
  - BLOOD MAGNESIUM DECREASED [None]
  - WHITE BLOOD CELL COUNT INCREASED [None]
  - NEPHROLITHIASIS [None]
  - RED CELL DISTRIBUTION WIDTH INCREASED [None]
  - CHILLS [None]
  - DECREASED APPETITE [None]
  - TREMOR [None]
  - PLATELET COUNT INCREASED [None]
  - NEUTROPHIL COUNT INCREASED [None]
  - BLOOD SODIUM DECREASED [None]
  - BLOOD CHLORIDE DECREASED [None]
  - HAEMOGLOBIN DECREASED [None]
  - HAEMATOCRIT DECREASED [None]
  - HEPATIC CYST [None]
  - ENTEROCOCCUS TEST POSITIVE [None]
  - CONDITION AGGRAVATED [None]
  - PYODERMA GANGRENOSUM [None]
  - NAUSEA [None]
  - GAMMA-GLUTAMYLTRANSFERASE INCREASED [None]
  - MONOCYTE COUNT INCREASED [None]
  - SPINAL OSTEOARTHRITIS [None]
  - GASTROINTESTINAL STOMA COMPLICATION [None]
  - GLYCOSYLATED HAEMOGLOBIN INCREASED [None]
  - DIARRHOEA [None]
  - BLOOD GLUCOSE INCREASED [None]
  - PROTHROMBIN TIME PROLONGED [None]
  - MEAN PLATELET VOLUME INCREASED [None]
  - HYPERTENSION [None]
  - GASTROOESOPHAGEAL REFLUX DISEASE [None]
  - CROHN'S DISEASE [None]
  - ABDOMINAL ABSCESS [None]
  - RED BLOOD CELL COUNT DECREASED [None]
